FAERS Safety Report 5818920-X (Version None)
Quarter: 2008Q3

REPORT INFORMATION
  Report Type: 
  Country: None (occurrence: None)
  Receive Date: 20080723
  Receipt Date: 20080711
  Transmission Date: 20090109
  Serious: Yes (Death, Hospitalization)
  Sender: FDA-Public Use
  Company Number: CH-BAYER-200822132GPV

PATIENT
  Age: 89 Year
  Sex: Male

DRUGS (11)
  1. ASPIRIN [Suspect]
     Indication: HYPERTENSIVE HEART DISEASE
     Dosage: TOTAL DAILY DOSE: 100 MG  UNIT DOSE: 100 MG
     Route: 048
     Dates: end: 20080617
  2. PREDNISONE TAB [Interacting]
     Indication: DRUG USE FOR UNKNOWN INDICATION
     Dosage: TOTAL DAILY DOSE: 20 MG  UNIT DOSE: 20 MG
     Route: 048
     Dates: end: 20080615
  3. MARCUMAR [Interacting]
     Indication: ATRIAL FIBRILLATION
     Route: 048
     Dates: end: 20080617
  4. DUPHALAC [GALACTOSE,LACTOSE,LACTULOSE] [Concomitant]
     Indication: DRUG USE FOR UNKNOWN INDICATION
     Route: 048
  5. METOPROLOL TARTRATE [Concomitant]
     Indication: DRUG USE FOR UNKNOWN INDICATION
     Dosage: TOTAL DAILY DOSE: 50 MG  UNIT DOSE: 50 MG
     Route: 048
  6. TOREM [Concomitant]
     Indication: DRUG USE FOR UNKNOWN INDICATION
     Dosage: TOTAL DAILY DOSE: 10 MG  UNIT DOSE: 10 MG
     Route: 048
  7. CORVATON [Concomitant]
     Indication: DRUG USE FOR UNKNOWN INDICATION
     Dosage: TOTAL DAILY DOSE: 4 MG  UNIT DOSE: 4 MG
     Route: 048
  8. DAFALGAN [Concomitant]
     Indication: DRUG USE FOR UNKNOWN INDICATION
     Dosage: TOTAL DAILY DOSE: 3 G  UNIT DOSE: 1 G
     Route: 048
  9. NOVALGIN [Concomitant]
     Indication: DRUG USE FOR UNKNOWN INDICATION
     Dosage: TOTAL DAILY DOSE: 1500 MG  UNIT DOSE: 500 MG
     Route: 048
     Dates: end: 20080611
  10. TRAMAL [Concomitant]
     Indication: DRUG USE FOR UNKNOWN INDICATION
     Dosage: TOTAL DAILY DOSE: 200 MG  UNIT DOSE: 100 MG
     Route: 048
     Dates: start: 20080610, end: 20080617
  11. MS CONTIN [Concomitant]
     Indication: DRUG USE FOR UNKNOWN INDICATION
     Route: 048

REACTIONS (11)
  - ANAEMIA [None]
  - ANAL HAEMORRHAGE [None]
  - DUODENAL ULCER [None]
  - DUODENITIS [None]
  - GASTRITIS EROSIVE [None]
  - GASTROINTESTINAL HAEMORRHAGE [None]
  - GASTROOESOPHAGEAL REFLUX DISEASE [None]
  - HAEMATOCHEZIA [None]
  - HAEMATOMA [None]
  - HYPOTENSION [None]
  - TACHYCARDIA [None]
